FAERS Safety Report 17998440 (Version 3)
Quarter: 2020Q4

REPORT INFORMATION
  Report Type: Spontaneous
  Country: US (occurrence: US)
  Receive Date: 20200709
  Receipt Date: 20201013
  Transmission Date: 20210113
  Serious: Yes (Death, Other)
  Sender: FDA-Public Use
  Company Number: US-BRISTOL-MYERS SQUIBB COMPANY-BMS-2020-054660

PATIENT
  Sex: Male

DRUGS (2)
  1. SPRYCEL [Suspect]
     Active Substance: DASATINIB
     Dosage: 100 MILLIGRAM
     Route: 048
  2. SPRYCEL [Suspect]
     Active Substance: DASATINIB
     Indication: CHRONIC MYELOID LEUKAEMIA
     Dosage: 1 TAB, DAILY
     Route: 048

REACTIONS (1)
  - Subdural haematoma [Fatal]
